FAERS Safety Report 7070628-1 (Version None)
Quarter: 2010Q4

REPORT INFORMATION
  Report Type: 
  Country: None (occurrence: None)
  Receive Date: 20101029
  Receipt Date: 20101023
  Transmission Date: 20110411
  Serious: Yes (Other)
  Sender: FDA-Public Use
  Company Number: US-PFIZER INC-2010134794

PATIENT
  Sex: Female
  Weight: 68.027 kg

DRUGS (3)
  1. CHANTIX [Suspect]
     Indication: SMOKING CESSATION THERAPY
     Dosage: 0.5 MG, 1X/DAY
     Route: 048
     Dates: start: 20101019
  2. KLONOPIN [Concomitant]
     Indication: ANXIETY
     Dosage: 6 MG, 1X/DAY
     Route: 048
  3. TRAZODONE [Concomitant]
     Indication: ANXIETY
     Dosage: 200 MG, 1X/DAY
     Route: 048
     Dates: start: 20090101

REACTIONS (2)
  - ARTHRALGIA [None]
  - JOINT SWELLING [None]
